FAERS Safety Report 9116666 (Version 2)
Quarter: 2013Q2

REPORT INFORMATION
  Report Type: Spontaneous
  Country: IT (occurrence: IT)
  Receive Date: 20130225
  Receipt Date: 20130530
  Transmission Date: 20140414
  Serious: Yes (Other)
  Sender: FDA-Public Use
  Company Number: IT-ROCHE-1194329

PATIENT
  Age: 57 Year
  Sex: Female
  Weight: 52 kg

DRUGS (5)
  1. XELODA [Suspect]
     Indication: COLON CANCER
     Route: 048
     Dates: start: 20121121, end: 20121123
  2. OXALIPLATIN HOSPIRA [Suspect]
     Indication: COLON CANCER
     Route: 042
     Dates: start: 20121121, end: 20121121
  3. ONDANSETRON HIKMA [Concomitant]
     Indication: COLON CANCER
     Route: 042
     Dates: start: 20121121, end: 20121121
  4. RANIDIL [Concomitant]
     Indication: COLON CANCER
     Route: 042
     Dates: start: 20121121, end: 20121121
  5. SOLDESAM [Concomitant]
     Indication: COLON CANCER
     Route: 042
     Dates: start: 20121121, end: 20121121

REACTIONS (2)
  - Paraesthesia [Recovering/Resolving]
  - Visual impairment [Recovering/Resolving]
